FAERS Safety Report 6649988 (Version 2)
Quarter: 2019Q1

REPORT INFORMATION
  Report Type: Spontaneous
  Country: GB (occurrence: GB)
  Receive Date: 20080527
  Receipt Date: 20190312
  Transmission Date: 20190418
  Serious: Yes (Other)
  Sender: FDA-Public Use
  Company Number: GB-PFIZER INC-2008042790

PATIENT
  Age: 40 Year
  Sex: Male
  Weight: 78 kg

DRUGS (1)
  1. CHAMPIX [Suspect]
     Active Substance: VARENICLINE TARTRATE
     Indication: SMOKING CESSATION THERAPY
     Dosage: 500 UG, UNK
     Route: 048
     Dates: start: 20080403, end: 20080420

REACTIONS (2)
  - Mood swings [Recovered/Resolved]
  - Depression [Recovered/Resolved]
